FAERS Safety Report 11105201 (Version 6)
Quarter: 2016Q2

REPORT INFORMATION
  Report Type: Report from Study
  Country: IT (occurrence: IT)
  Receive Date: 20150511
  Receipt Date: 20160524
  Transmission Date: 20160815
  Serious: Yes (Other)
  Sender: FDA-Public Use
  Company Number: PHHY2014IT143443

PATIENT
  Age: 45 Year
  Sex: Female
  Weight: 70 kg

DRUGS (3)
  1. VITAMIN D [Concomitant]
     Active Substance: CHOLECALCIFEROL
     Indication: PRODUCT USED FOR UNKNOWN INDICATION
     Dosage: UNK
     Route: 065
  2. GILENYA [Suspect]
     Active Substance: FINGOLIMOD HYDROCHLORIDE
     Indication: MULTIPLE SCLEROSIS
     Dosage: 0.5 MG, QD
     Route: 048
     Dates: start: 20140728, end: 20150126
  3. EUTIROX [Concomitant]
     Active Substance: LEVOTHYROXINE SODIUM
     Indication: AUTOIMMUNE THYROIDITIS
     Dosage: UNK
     Route: 065

REACTIONS (7)
  - Rheumatoid arthritis [Recovered/Resolved with Sequelae]
  - Arthralgia [Recovering/Resolving]
  - Hepatic enzyme increased [Recovered/Resolved]
  - Blood cholesterol increased [Unknown]
  - Hypertension [Recovered/Resolved]
  - Hepatic failure [Recovered/Resolved with Sequelae]
  - Lymphocyte count decreased [Unknown]

NARRATIVE: CASE EVENT DATE: 20140820
